FAERS Safety Report 18203107 (Version 2)
Quarter: 2020Q3

REPORT INFORMATION
  Report Type: Spontaneous
  Country: FR (occurrence: FR)
  Receive Date: 20200827
  Receipt Date: 20200903
  Transmission Date: 20201104
  Serious: Yes (Other)
  Sender: FDA-Public Use
  Company Number: FR-MYLANLABS-2020M1073715

PATIENT
  Age: 1 Year
  Sex: Female
  Weight: 14 kg

DRUGS (18)
  1. SUFENTANIL [Suspect]
     Active Substance: SUFENTANIL
     Indication: GENERAL ANAESTHESIA
     Dosage: 5 MICROGRAM, TOTAL
     Route: 042
     Dates: start: 20200609, end: 20200609
  2. ESMERON [Suspect]
     Active Substance: ROCURONIUM BROMIDE
     Indication: GENERAL ANAESTHESIA
     Dosage: 11.3 MILLIGRAM, TOTAL
     Route: 042
     Dates: start: 20200609, end: 20200609
  3. ORAMORPH [Concomitant]
     Active Substance: MORPHINE SULFATE
     Indication: PAIN
     Dosage: 10 MILLIGRAM, QD
     Route: 048
     Dates: start: 202003
  4. DOLIPRANE [Concomitant]
     Active Substance: ACETAMINOPHEN
     Dosage: 4 DOSAGE FORM, QD
     Route: 048
  5. CEFOTAXIME [Suspect]
     Active Substance: CEFOTAXIME SODIUM
     Indication: ANTIBIOTIC PROPHYLAXIS
     Dosage: 650 MILLIGRAM, TOTAL
     Route: 042
     Dates: start: 20200609
  6. INEXIUM                            /01479302/ [Concomitant]
     Active Substance: ESOMEPRAZOLE MAGNESIUM
     Indication: GASTROOESOPHAGEAL REFLUX DISEASE
     Dosage: 10 MILLIGRAM, QD
     Route: 048
  7. NOREPINEPHRINE. [Suspect]
     Active Substance: NOREPINEPHRINE
     Indication: GENERAL ANAESTHESIA
     Dosage: 70.5 GIGABECQUEREL, TOTAL
     Route: 042
     Dates: start: 20200609, end: 20200609
  8. PROPOFOL. [Suspect]
     Active Substance: PROPOFOL
     Indication: GENERAL ANAESTHESIA
     Dosage: 45 MILLIGRAM, TOTAL
     Route: 041
     Dates: start: 20200609, end: 20200609
  9. EPHEDRINE. [Suspect]
     Active Substance: EPHEDRINE
     Indication: GENERAL ANAESTHESIA
     Dosage: 5 MILLIGRAM, TOTAL
     Route: 042
     Dates: start: 20200609, end: 20200609
  10. CELESTENE                          /02907501/ [Concomitant]
     Active Substance: BETAMETHASONE ACETATE\DEXAMETHASONE SODIUM PHOSPHATE
     Dosage: INCONNUE
     Route: 048
     Dates: start: 20200609, end: 20200614
  11. MORPHINE                           /00036303/ [Concomitant]
     Active Substance: MORPHINE HYDROCHLORIDE
     Indication: PAIN
     Dosage: 1 MILLIGRAM, QD
     Route: 042
     Dates: start: 20200609, end: 20200609
  12. CATAPRESSAN                        /00171102/ [Concomitant]
     Active Substance: CLONIDINE HYDROCHLORIDE
     Dosage: 0.08 MILLIGRAM, QD
     Route: 042
  13. FORLAX [Concomitant]
     Active Substance: POLYETHYLENE GLYCOL 4000
     Dosage: 6 GRAM, QD
     Route: 048
  14. ISOPEDIA [Suspect]
     Active Substance: CALCIUM CHLORIDE\DEXTROSE\MAGNESIUM CHLORIDE\POTASSIUM CHLORIDE\SODIUM ACETATE\SODIUM CHLORIDE
     Indication: FLUID REPLACEMENT
     Dosage: 185 MILLILITER, QD
     Route: 042
     Dates: start: 20200609, end: 20200609
  15. BIONOLYTE [Suspect]
     Active Substance: DEXTROSE\POTASSIUM CHLORIDE\SODIUM CHLORIDE
     Indication: BLOOD VOLUME EXPANSION
     Dosage: 66.6 MILLILITER, TOTAL
     Route: 042
     Dates: start: 20200609, end: 20200609
  16. ZOPHREN                            /00955302/ [Concomitant]
     Active Substance: ONDANSETRON
     Indication: NAUSEA
     Dosage: 3 MILLIGRAM, QD
     Route: 042
  17. MELATONINE [Concomitant]
     Active Substance: MELATONIN
     Indication: SLEEP DISORDER
     Dosage: 1 MILLIGRAM, QD
     Route: 048
     Dates: start: 202004
  18. ARANESP [Concomitant]
     Active Substance: DARBEPOETIN ALFA
     Indication: ANAEMIA
     Dosage: 1 DOSAGE FORM, Q4D
     Route: 058

REACTIONS (1)
  - Pancreatitis [Recovered/Resolved]

NARRATIVE: CASE EVENT DATE: 20200611
